FAERS Safety Report 5902773-5 (Version None)
Quarter: 2008Q3

REPORT INFORMATION
  Report Type: 
  Country: None (occurrence: None)
  Receive Date: 20080926
  Receipt Date: 20080916
  Transmission Date: 20090109
  Serious: Yes (Other)
  Sender: FDA-Public Use
  Company Number: 2008AP002433

PATIENT
  Sex: Female

DRUGS (1)
  1. ALENDRONATE SODIUM [Suspect]
     Dosage: 70 MG; 1X; PO
     Route: 048

REACTIONS (26)
  - ARTHRALGIA [None]
  - ASTHENIA [None]
  - BACK PAIN [None]
  - BONE PAIN [None]
  - CHEST DISCOMFORT [None]
  - CHEST PAIN [None]
  - DISCOMFORT [None]
  - DIZZINESS [None]
  - DYSPNOEA [None]
  - ERYTHEMA [None]
  - EYE IRRITATION [None]
  - EYE PAIN [None]
  - GAIT DISTURBANCE [None]
  - HEADACHE [None]
  - HYPERSENSITIVITY [None]
  - INSOMNIA [None]
  - MUSCLE SPASMS [None]
  - MYALGIA [None]
  - NECK PAIN [None]
  - ORAL DISCOMFORT [None]
  - PAIN [None]
  - PAIN IN JAW [None]
  - PAIN OF SKIN [None]
  - SKIN BURNING SENSATION [None]
  - TENDERNESS [None]
  - TOOTHACHE [None]
